FAERS Safety Report 4469004-7 (Version None)
Quarter: 2004Q4

REPORT INFORMATION
  Report Type: 
  Country: None (occurrence: None)
  Receive Date: 20041005
  Receipt Date: 20040920
  Transmission Date: 20050328
  Serious: Yes (Hospitalization)
  Sender: FDA-Public Use
  Company Number: F01200402852

PATIENT
  Age: 61 Year
  Sex: Male

DRUGS (2)
  1. (OXALIPLATIN) - SOLUTION - 130 MG/M2 [Suspect]
     Indication: NON-SMALL CELL LUNG CANCER
     Dosage: 260 MG Q3W, INTRAVENOUS NOS
     Route: 042
     Dates: start: 20040624, end: 20040624
  2. (GEMCITABINE) - SOLUTION - 1250 MG/M2 [Suspect]
     Dosage: 2500 MG ON DAY 1 AND DAY 8, Q3W  INTRAVENOUS NOS
     Route: 042
     Dates: start: 20040701, end: 20040701

REACTIONS (9)
  - ANAEMIA [None]
  - DEHYDRATION [None]
  - GENERAL PHYSICAL HEALTH DETERIORATION [None]
  - LIVER FUNCTION TEST ABNORMAL [None]
  - MYCOSIS FUNGOIDES [None]
  - OLIGURIA [None]
  - PALLOR [None]
  - PYREXIA [None]
  - PYURIA [None]
